FAERS Safety Report 24242239 (Version 4)
Quarter: 2024Q3

REPORT INFORMATION
  Report Type: Spontaneous
  Country: GB (occurrence: GB)
  Receive Date: 20240823
  Receipt Date: 20240919
  Transmission Date: 20241016
  Serious: Yes (Hospitalization, Other)
  Sender: MYLAN
  Company Number: GB-MYLANLABS-2024M1036480

PATIENT
  Sex: Female

DRUGS (3)
  1. CLOZARIL [Suspect]
     Active Substance: CLOZAPINE
     Indication: Schizophrenia
     Dosage: UNK (REGIMEN STOPPED APR-2024)
     Route: 048
     Dates: start: 20240403
  2. CLOZARIL [Suspect]
     Active Substance: CLOZAPINE
     Dosage: UNK
     Route: 048
     Dates: start: 20240501
  3. CLOZARIL [Suspect]
     Active Substance: CLOZAPINE
     Dosage: UNK
     Route: 048
     Dates: start: 20240722

REACTIONS (14)
  - Cholecystitis acute [Unknown]
  - Malaise [Unknown]
  - Hypotension [Unknown]
  - Heart rate increased [Unknown]
  - Pyrexia [Unknown]
  - Pancreatitis [Unknown]
  - Neutropenia [Recovered/Resolved]
  - Leukopenia [Recovered/Resolved]
  - Urinary tract infection [Unknown]
  - Vital functions abnormal [Unknown]
  - Body temperature increased [Unknown]
  - Eosinophil count decreased [Not Recovered/Not Resolved]
  - Therapy interrupted [Unknown]
  - Contraindicated product administered [Unknown]

NARRATIVE: CASE EVENT DATE: 20240820
